FAERS Safety Report 21299637 (Version 2)
Quarter: 2025Q1

REPORT INFORMATION
  Report Type: Spontaneous
  Country: US (occurrence: US)
  Receive Date: 20220906
  Receipt Date: 20250207
  Transmission Date: 20250408
  Serious: No
  Sender: BRISTOL-MYERS SQUIBB COMPANY
  Company Number: US-BRISTOL-MYERS SQUIBB COMPANY-2022-099517

PATIENT
  Age: 86 Year
  Sex: Male

DRUGS (1)
  1. SPRYCEL [Suspect]
     Active Substance: DASATINIB
     Indication: Plasma cell leukaemia
     Dosage: DOSE : 70MG;     FREQ : DAILY
     Route: 048

REACTIONS (1)
  - Intentional device use issue [Unknown]

NARRATIVE: CASE EVENT DATE: 20220831
